FAERS Safety Report 19032878 (Version 1)
Quarter: 2021Q1

REPORT INFORMATION
  Report Type: Spontaneous
  Country: US (occurrence: US)
  Receive Date: 20210319
  Receipt Date: 20210319
  Transmission Date: 20210420
  Serious: No
  Sender: FDA-Public Use
  Company Number: US-THERAPEUTICSMD-2021TMD00430

PATIENT
  Sex: Female
  Weight: 70.75 kg

DRUGS (15)
  1. UNSPECIFIED ALLERGY MEDICINE [Concomitant]
  2. ARNUITY ELLIPTA [Concomitant]
     Active Substance: FLUTICASONE FUROATE
  3. UNSPECIFIED DEPRESSION MEDICINE [Concomitant]
  4. TIKOSYN [Concomitant]
     Active Substance: DOFETILIDE
  5. SINGULAIR [Concomitant]
     Active Substance: MONTELUKAST SODIUM
  6. ALBUTEROL. [Concomitant]
     Active Substance: ALBUTEROL
  7. IMVEXXY [Suspect]
     Active Substance: ESTRADIOL
     Indication: VULVOVAGINAL DRYNESS
     Dosage: 4 ?G, 1X/DAY USUALLY AT BEDTIME
     Route: 067
     Dates: start: 202010, end: 2020
  8. IMVEXXY [Suspect]
     Active Substance: ESTRADIOL
     Indication: RECTOCELE
     Dosage: 8 ?G, 2X/WEEK USUALLY AT BEDTIME
     Route: 067
     Dates: start: 2020, end: 20210119
  9. UNSPECIFIED PRODUCTS FOR ASTHMA [Concomitant]
  10. UNSPECIFIED BLOOD THINNER [Concomitant]
     Active Substance: UNSPECIFIED INGREDIENT
  11. UNSPECIFIED HEART MEDICATIONS [Concomitant]
     Active Substance: UNSPECIFIED INGREDIENT
  12. UNSPECIFIED CREAMS FOR ALLERGIES AND ECZEMA [Concomitant]
  13. UNSPECIFIED FLUID PILLS [Concomitant]
  14. FLONASE [Concomitant]
     Active Substance: FLUTICASONE PROPIONATE
  15. UNSPECIFIED ANGINA MEDICINE [Concomitant]

REACTIONS (4)
  - Contraindicated product administered [Recovered/Resolved]
  - Off label use [Recovered/Resolved]
  - Vulvovaginal pain [Recovering/Resolving]
  - Drug ineffective for unapproved indication [Recovered/Resolved]

NARRATIVE: CASE EVENT DATE: 2020
